FAERS Safety Report 9462204 (Version 1)
Quarter: 2013Q3

REPORT INFORMATION
  Report Type: Spontaneous
  Country: US (occurrence: None)
  Receive Date: 20130815
  Receipt Date: 20130815
  Transmission Date: 20140515
  Serious: No
  Sender: FDA-Public Use
  Company Number: None

PATIENT
  Sex: 0

DRUGS (1)
  1. REMICADE [Suspect]
     Indication: INFUSION
     Dates: start: 20130804

REACTIONS (2)
  - Device infusion issue [None]
  - Device occlusion [None]
